FAERS Safety Report 25379131 (Version 2)
Quarter: 2025Q4

REPORT INFORMATION
  Report Type: Spontaneous
  Country: US (occurrence: US)
  Receive Date: 20250530
  Receipt Date: 20251007
  Transmission Date: 20260117
  Serious: No
  Sender: SANDOZ
  Company Number: US-SANDOZ-SDZ2025US037464

PATIENT
  Sex: Female

DRUGS (2)
  1. ALBUTEROL SULFATE [Suspect]
     Active Substance: ALBUTEROL SULFATE
     Indication: Dyspnoea
     Dosage: INHALATIONS EVERY 6 HOURS AT MAX, SOMETIMES LESS
     Route: 048
  2. ALBUTEROL SULFATE [Suspect]
     Active Substance: ALBUTEROL SULFATE
     Indication: Asthma
     Dosage: INHALATIONS EVERY 6 HOURS AT MAX, SOMETIMES LESS
     Route: 048

REACTIONS (3)
  - Drug dose omission by device [Unknown]
  - Device occlusion [Unknown]
  - Device use error [Unknown]
